FAERS Safety Report 12384336 (Version 1)
Quarter: 2016Q2

REPORT INFORMATION
  Report Type: Spontaneous
  Country: US (occurrence: None)
  Receive Date: 20160518
  Receipt Date: 20160518
  Transmission Date: 20160815
  Serious: No
  Sender: FDA-Public Use
  Company Number: None

PATIENT
  Age: 47 Year
  Sex: Male
  Weight: 77.11 kg

DRUGS (7)
  1. OMEPRAZOL [Concomitant]
     Active Substance: OMEPRAZOLE
  2. DULOXETINE HCL DR, 60 MG PRASCO LABS [Suspect]
     Active Substance: DULOXETINE HYDROCHLORIDE
     Indication: BACK PAIN
     Dosage: 30 CAPSULE(S) IN THE MORNING TAKEN BY MOUTH
     Route: 048
     Dates: start: 20160202, end: 20160422
  3. CELEBREX [Concomitant]
     Active Substance: CELECOXIB
  4. ATORVASTATIN [Concomitant]
     Active Substance: ATORVASTATIN
  5. FENTANYL. [Concomitant]
     Active Substance: FENTANYL
  6. LOW DOSE ASPIRIN [Concomitant]
     Active Substance: ASPIRIN
  7. AMLODAPINE [Concomitant]

REACTIONS (3)
  - Dizziness [None]
  - Nausea [None]
  - Vision blurred [None]

NARRATIVE: CASE EVENT DATE: 20160423
